FAERS Safety Report 5674344-X (Version None)
Quarter: 2008Q2

REPORT INFORMATION
  Report Type: 
  Country: None (occurrence: None)
  Receive Date: 20080227
  Receipt Date: 20080117
  Transmission Date: 20081010
  Serious: Yes (Other)
  Sender: FDA-Public Use
  Company Number: 2008S1000849

PATIENT
  Age: 85 Year
  Sex: Male

DRUGS (12)
  1. PRAVASTATIN [Suspect]
     Indication: HYPERLIPIDAEMIA
     Dosage: 10 MG;ORAL
     Route: 048
     Dates: start: 20070703, end: 20071211
  2. ACARDI [Concomitant]
  3. ALDACTONE [Concomitant]
  4. ZYLORIC /00003301/ [Concomitant]
  5. SIGMART [Concomitant]
  6. SELBEX [Concomitant]
  7. ASPIRIN [Concomitant]
  8. CANDESARTAN CILEXETIL [Concomitant]
  9. MAINTATE [Concomitant]
  10. LASIX [Concomitant]
  11. WARFARIN SODIUM [Concomitant]
  12. MEVALOTIN [Concomitant]

REACTIONS (1)
  - BLOOD CREATINE PHOSPHOKINASE INCREASED [None]
